FAERS Safety Report 17722185 (Version 1)
Quarter: 2020Q2

REPORT INFORMATION
  Report Type: Report from Study
  Country: US (occurrence: US)
  Receive Date: 20200429
  Receipt Date: 20200429
  Transmission Date: 20200714
  Serious: Yes (Hospitalization)
  Sender: FDA-Public Use
  Company Number: PHHO2019US009331

PATIENT
  Age: 71 Year
  Sex: Female
  Weight: 62.7 kg

DRUGS (4)
  1. GSK2118436 [Suspect]
     Active Substance: DABRAFENIB
     Indication: THYROID CANCER
     Dosage: 150 MG, BID
     Route: 048
     Dates: start: 20161027, end: 20190908
  2. GSK2118436 [Suspect]
     Active Substance: DABRAFENIB
     Dosage: 150 MG, BID
     Route: 048
     Dates: start: 20190913, end: 20200208
  3. TYVERB [Suspect]
     Active Substance: LAPATINIB
     Indication: THYROID CANCER
     Dosage: 1500 MG, QD
     Route: 048
     Dates: start: 20161027, end: 20190908
  4. TYVERB [Suspect]
     Active Substance: LAPATINIB
     Dosage: 1500 MG, QD
     Route: 048
     Dates: start: 20190913, end: 20200208

REACTIONS (2)
  - Pancreatitis [Recovered/Resolved]
  - Pancreatitis [Recovered/Resolved]

NARRATIVE: CASE EVENT DATE: 20190909
